FAERS Safety Report 9540623 (Version 1)
Quarter: 2013Q3

REPORT INFORMATION
  Report Type: Spontaneous
  Country: US (occurrence: US)
  Receive Date: 20130920
  Receipt Date: 20130920
  Transmission Date: 20140515
  Serious: Yes (Other)
  Sender: FDA-Public Use
  Company Number: PHHY2013US102983

PATIENT
  Age: 56 Year
  Sex: Female

DRUGS (3)
  1. ANASTROZOLE [Suspect]
     Indication: BREAST CANCER
  2. CARBOPLATIN [Suspect]
     Indication: CHEMOTHERAPY
  3. PACLITAXEL [Concomitant]
     Indication: CHEMOTHERAPY

REACTIONS (3)
  - Papilloedema [Recovered/Resolved]
  - Visual field defect [Recovered/Resolved]
  - Visual acuity reduced [Recovered/Resolved]
